FAERS Safety Report 9883091 (Version 1)
Quarter: 2014Q1

REPORT INFORMATION
  Report Type: Spontaneous
  Country: ES (occurrence: ES)
  Receive Date: 20140208
  Receipt Date: 20140208
  Transmission Date: 20141002
  Serious: Yes (Death, Hospitalization, Other)
  Sender: FDA-Public Use
  Company Number: ES-VERTEX PHARMACEUTICALS INC-2014-000648

PATIENT
  Age: 65 Year
  Sex: Male

DRUGS (9)
  1. INCIVO [Suspect]
     Indication: CHRONIC HEPATITIS C
     Dosage: 1125 MG, BID
     Route: 048
     Dates: start: 20130430, end: 20130723
  2. CARDURAN NEO [Suspect]
     Indication: HYPERTENSION
     Dosage: DOSAGE FORM: UNKNOWN
     Route: 048
     Dates: start: 2013
  3. PEGINTRON [Suspect]
     Indication: CHRONIC HEPATITIS C
     Dosage: DOSAGE FORM: UNKNOWN
     Route: 058
     Dates: start: 20130625, end: 20131230
  4. PEGINTRON [Suspect]
     Dosage: DOSAGE FORM: UNKNOWN
     Route: 058
     Dates: start: 20130430, end: 20130528
  5. PEGINTRON [Suspect]
     Dosage: DOSAGE FORM: UNKNOWN
     Route: 058
     Dates: start: 20130528, end: 20130625
  6. RIBAVIRIN [Suspect]
     Indication: CHRONIC HEPATITIS C
     Dosage: DOSAGE FORM: UNKNOWN
     Route: 048
     Dates: start: 20130705, end: 20140110
  7. RIBAVIRIN [Suspect]
     Dosage: DOSAGE FORM: UNKNOWN
     Route: 048
     Dates: start: 20130625
  8. RIBAVIRIN [Suspect]
     Dosage: DOSAGE FORM: UNKNOWN
     Route: 048
     Dates: start: 20130430
  9. RIBAVIRIN [Suspect]
     Dosage: DOSAGE FORM: UNKNOWN
     Route: 048
     Dates: start: 20130611

REACTIONS (4)
  - Acute myocardial infarction [Fatal]
  - Urinary tract infection [Recovered/Resolved]
  - Platelet count decreased [Unknown]
  - Haemoglobin decreased [Unknown]
